FAERS Safety Report 25912440 (Version 2)
Quarter: 2025Q4

REPORT INFORMATION
  Report Type: Spontaneous
  Country: US (occurrence: US)
  Receive Date: 20251013
  Receipt Date: 20251108
  Transmission Date: 20260117
  Serious: No
  Sender: SANOFI AVENTIS
  Company Number: US-SA-2025SA303252

PATIENT
  Age: 54 Year
  Sex: Male
  Weight: 86.36 kg

DRUGS (4)
  1. DUPIXENT [Suspect]
     Active Substance: DUPILUMAB
     Indication: Dermatitis atopic
     Dosage: 300 MG, QOW
     Route: 058
     Dates: start: 202509
  2. FLONASE ALLERGY RELIEF [Concomitant]
     Active Substance: FLUTICASONE PROPIONATE
  3. TACROLIMUS [Concomitant]
     Active Substance: TACROLIMUS
  4. TRIAMCINOLONE ACETONIDE [Concomitant]
     Active Substance: TRIAMCINOLONE ACETONIDE

REACTIONS (8)
  - Dry skin [Not Recovered/Not Resolved]
  - Blister [Recovered/Resolved]
  - Injection site mass [Recovered/Resolved]
  - Skin exfoliation [Not Recovered/Not Resolved]
  - Pruritus [Recovering/Resolving]
  - Urticaria [Recovered/Resolved]
  - Dry eye [Unknown]
  - Rash [Unknown]

NARRATIVE: CASE EVENT DATE: 20250101
